FAERS Safety Report 9216501 (Version 1)
Quarter: 2013Q1

REPORT INFORMATION
  Report Type: Spontaneous
  Country: GB (occurrence: None)
  Receive Date: 20130319
  Receipt Date: 20130319
  Transmission Date: 20140127
  Serious: Yes (Life-Threatening, Other)
  Sender: FDA-Public Use
  Company Number: GER/UKI/13/0028557

PATIENT
  Age: 85 Year
  Sex: Female

DRUGS (12)
  1. DONEPEZIL (DONEPEZIL) [Suspect]
     Indication: DEMENTIA ALZHEIMER^S TYPE
     Route: 048
     Dates: start: 20130222, end: 20130225
  2. AMLODIPINE (AMLODIPINE) [Concomitant]
  3. ATENOLOL (ATENOLOL) [Concomitant]
  4. CO-CODAMOL (PANADEINE CO) [Concomitant]
  5. GAVISCON/00237601 [Concomitant]
  6. HYPROMELLOSE (HYPROMELLOSE) [Concomitant]
  7. IRBESARTAN W/HYDROCHLOROTHIAZIDE (KARVEA HCT) [Concomitant]
  8. LACTULOSE (LACTULOSE) [Concomitant]
  9. SENNA (SENNA ALEXANDRINA) [Concomitant]
  10. SIMVASTATIN (SIMVASTATIN) [Concomitant]
  11. VITAMIN B SUBSTANCES (VITAMIN B COMPLEX) [Concomitant]
  12. XALACOM (XALACOM) [Concomitant]

REACTIONS (7)
  - Loss of consciousness [None]
  - Muscle rigidity [None]
  - Convulsion [None]
  - Tremor [None]
  - Respiratory rate increased [None]
  - Respiratory disorder [None]
  - Confusional state [None]
